FAERS Safety Report 4738381-1 (Version None)
Quarter: 2005Q3

REPORT INFORMATION
  Report Type: 
  Country: None (occurrence: None)
  Receive Date: 20050809
  Receipt Date: 20050805
  Transmission Date: 20060218
  Serious: Yes (Hospitalization, Other)
  Sender: FDA-Public Use
  Company Number: US-GLAXOSMITHKLINE-A0569108A

PATIENT
  Age: 39 Year
  Sex: Female

DRUGS (4)
  1. PAXIL [Suspect]
     Indication: POST-TRAUMATIC STRESS DISORDER
     Dosage: 40MG TWICE PER DAY
     Route: 048
     Dates: start: 19980101, end: 20000101
  2. ZOLOFT [Concomitant]
  3. LORAZEPAM [Concomitant]
  4. REMERON [Concomitant]

REACTIONS (7)
  - AGGRESSION [None]
  - AGITATION [None]
  - DEPRESSION [None]
  - INJURY [None]
  - PSYCHOTIC DISORDER [None]
  - RASH [None]
  - SUICIDE ATTEMPT [None]
